FAERS Safety Report 17528119 (Version 2)
Quarter: 2020Q1

REPORT INFORMATION
  Report Type: Spontaneous
  Country: JP (occurrence: JP)
  Receive Date: 20200311
  Receipt Date: 20200319
  Transmission Date: 20200409
  Serious: Yes (Other)
  Sender: FDA-Public Use
  Company Number: JP-UCBSA-2020010285

PATIENT
  Age: 74 Year
  Sex: Female

DRUGS (2)
  1. E KEPPRA [Suspect]
     Active Substance: LEVETIRACETAM
     Indication: PARTIAL SEIZURES
     Dosage: 500 MILLIGRAM, 2X/DAY (BID)
     Route: 048
  2. E KEPPRA [Suspect]
     Active Substance: LEVETIRACETAM
     Indication: PARTIAL SEIZURES
     Dosage: 500 MG ,AS NEEDED
     Route: 041

REACTIONS (4)
  - Off label use [Unknown]
  - Drug ineffective [Unknown]
  - Cerebral infarction [Unknown]
  - Seizure [Unknown]
